FAERS Safety Report 9057299 (Version 1)
Quarter: 2013Q1

REPORT INFORMATION
  Report Type: Spontaneous
  Country: US (occurrence: US)
  Receive Date: 20130131
  Receipt Date: 20130131
  Transmission Date: 20140127
  Serious: Yes (Other)
  Sender: FDA-Public Use
  Company Number: US-GLAXOSMITHKLINE-B0863491A

PATIENT
  Age: 56 Year
  Sex: Female

DRUGS (10)
  1. ADVAIR [Suspect]
     Indication: ASTHMA
     Route: 055
  2. COUMADIN [Concomitant]
     Route: 065
  3. SIMVASTATIN [Concomitant]
     Route: 065
  4. HYDRALAZINE [Concomitant]
     Route: 065
  5. LASIX [Concomitant]
     Route: 065
  6. CALCITROL [Concomitant]
     Route: 065
  7. ASPIRIN [Concomitant]
     Route: 065
  8. LISINOPRIL [Concomitant]
     Route: 065
  9. FEOSOL [Concomitant]
     Route: 065
  10. INSULIN [Concomitant]
     Route: 065

REACTIONS (5)
  - Chorioretinopathy [Unknown]
  - Vision blurred [Unknown]
  - Visual acuity reduced [Unknown]
  - Retinal detachment [Unknown]
  - Retinal laser coagulation [Unknown]
